FAERS Safety Report 7456204-7 (Version None)
Quarter: 2011Q2

REPORT INFORMATION
  Report Type: 
  Country: None (occurrence: None)
  Receive Date: 20110503
  Receipt Date: 20110422
  Transmission Date: 20111010
  Serious: Yes (Hospitalization, Other)
  Sender: FDA-Public Use
  Company Number: AR-AMGEN-ARGSP2011019999

PATIENT
  Age: 59 Year
  Sex: Female
  Weight: 64 kg

DRUGS (5)
  1. ENBREL [Suspect]
     Indication: RHEUMATOID ARTHRITIS
     Dosage: 50 MG, WEEKLY
     Route: 058
     Dates: start: 20070101, end: 20110101
  2. MEPREDNISONE [Concomitant]
     Dosage: UNK
     Route: 048
     Dates: start: 20010101
  3. DICLOFENAC [Concomitant]
     Dosage: UNK
     Route: 048
     Dates: start: 20010101
  4. METHOTREXATE [Concomitant]
     Dosage: UNK
     Route: 048
     Dates: start: 20010101
  5. FOLIC ACID [Concomitant]
     Dosage: UNK
     Route: 048
     Dates: start: 20010101

REACTIONS (5)
  - HYPOTHYROIDISM [None]
  - SEPTIC SHOCK [None]
  - DIABETES MELLITUS [None]
  - LOSS OF CONSCIOUSNESS [None]
  - PYREXIA [None]
